FAERS Safety Report 7462609-0 (Version None)
Quarter: 2011Q2

REPORT INFORMATION
  Report Type: 
  Country: None (occurrence: None)
  Receive Date: 20110506
  Receipt Date: 20110503
  Transmission Date: 20111010
  Serious: Yes (Hospitalization, Other)
  Sender: FDA-Public Use
  Company Number: US-AMGEN-QUU443470

PATIENT
  Age: 66 Year
  Sex: Male

DRUGS (5)
  1. NPLATE [Suspect]
     Dates: start: 20100427
  2. NPLATE [Suspect]
     Indication: IDIOPATHIC THROMBOCYTOPENIC PURPURA
     Dosage: UNK UNK, UNK
     Dates: start: 20100427
  3. WARFARIN SODIUM [Concomitant]
  4. IMMUNOGLOBULINS [Concomitant]
     Dosage: UNK UNK, UNK
     Route: 042
     Dates: start: 20070604
  5. CORTICOSTEROID NOS [Concomitant]
     Dosage: UNK UNK, UNK
     Dates: start: 20080711

REACTIONS (4)
  - STAPHYLOCOCCAL INFECTION [None]
  - ARTHRITIS BACTERIAL [None]
  - HOSPITALISATION [None]
  - CARDIAC FAILURE CONGESTIVE [None]
